FAERS Safety Report 17528321 (Version 2)
Quarter: 2020Q3

REPORT INFORMATION
  Report Type: Report from Study
  Country: JP (occurrence: JP)
  Receive Date: 20200311
  Receipt Date: 20200902
  Transmission Date: 20201102
  Serious: Yes (Hospitalization)
  Sender: FDA-Public Use
  Company Number: JP-REGENERON PHARMACEUTICALS, INC.-2020-22434

PATIENT

DRUGS (12)
  1. GLYCOPYRRONIUM BROMIDE W/INDACATEROL MALEATE [Concomitant]
     Active Substance: GLYCOPYRROLATE\INDACATEROL MALEATE
     Indication: ASTHMA-CHRONIC OBSTRUCTIVE PULMONARY DISEASE OVERLAP SYNDROME
     Dosage: 1 INHALATION, QD INHALED
     Route: 055
     Dates: start: 2016
  2. ZOLPIDEM TARTRATE. [Concomitant]
     Active Substance: ZOLPIDEM TARTRATE
     Indication: INSOMNIA
     Dosage: 5 MG, AS NECESSARY
     Route: 048
     Dates: start: 20200224, end: 20200224
  3. CALCIUM CARBONATE W/COLECALCIFEROL//08220201/ [Concomitant]
     Active Substance: CALCIUM CARBONATE\CHOLECALCIFEROL\MAGNESIUM SULFATE
     Indication: OSTEOPOROSIS PROPHYLAXIS
     Dosage: 2 TABLETS, QD
     Route: 048
     Dates: start: 20200218, end: 20200226
  4. ACETAMINOPHEN. [Concomitant]
     Active Substance: ACETAMINOPHEN
     Indication: TUMOUR PAIN
     Dosage: 3000 MG, TID
     Route: 048
     Dates: start: 20191218, end: 20200323
  5. NADIFLOXACIN [Concomitant]
     Active Substance: NADIFLOXACIN
     Indication: INFECTED DERMAL CYST
     Dosage: PROPER DOSE, QD
     Route: 062
     Dates: start: 20200220, end: 20200319
  6. CEMIPLIMAB [Suspect]
     Active Substance: CEMIPLIMAB
     Indication: LUNG ADENOCARCINOMA STAGE IV
     Dosage: 350 MG, Q3W
     Route: 042
     Dates: start: 20200221, end: 20200221
  7. SODIUM CHLORIDE. [Concomitant]
     Active Substance: SODIUM CHLORIDE
     Indication: HYPONATRAEMIA
     Dosage: 3 G, TID
     Route: 048
     Dates: start: 20191126, end: 20200728
  8. ESOMEPRAZOLE MAGNESIUM. [Concomitant]
     Active Substance: ESOMEPRAZOLE MAGNESIUM
     Indication: GASTRITIS PROPHYLAXIS
     Dosage: 20 MG, QD
     Route: 048
     Dates: start: 20200116
  9. FLUTICASONE FUROATE [Concomitant]
     Active Substance: FLUTICASONE FUROATE
     Indication: ASTHMA-CHRONIC OBSTRUCTIVE PULMONARY DISEASE OVERLAP SYNDROME
     Dosage: 1 INHALATION, QD INHALED
     Route: 055
     Dates: start: 20190806, end: 20200311
  10. CELECOXIB. [Concomitant]
     Active Substance: CELECOXIB
     Indication: TUMOUR PAIN
     Dosage: 400 MG, BID
     Route: 048
     Dates: start: 20200116, end: 20200318
  11. DESLORATADINE. [Concomitant]
     Active Substance: DESLORATADINE
     Indication: RASH MACULO-PAPULAR
     Dosage: 5 MG, QD
     Route: 048
     Dates: start: 20200225, end: 20200310
  12. BETAMETHASONE G [Concomitant]
     Indication: RASH MACULO-PAPULAR
     Dosage: PROPER DOSE, AS NECESSARY
     Route: 062
     Dates: start: 20200225, end: 20200226

REACTIONS (2)
  - Hepatic function abnormal [Recovered/Resolved]
  - Rash maculo-papular [Recovered/Resolved]

NARRATIVE: CASE EVENT DATE: 20200227
